FAERS Safety Report 5662308-1 (Version None)
Quarter: 2008Q1

REPORT INFORMATION
  Report Type: 
  Country: None (occurrence: None)
  Receive Date: 20080312
  Receipt Date: 20080229
  Transmission Date: 20080703
  Serious: Yes (Hospitalization)
  Sender: FDA-Public Use
  Company Number: JP-PFIZER INC-2008018155

PATIENT
  Sex: Male

DRUGS (4)
  1. TOLTERODINE TARTRATE [Suspect]
     Indication: HYPERTONIC BLADDER
     Dosage: DAILY DOSE:2MG
     Route: 048
     Dates: start: 20080101, end: 20080226
  2. OLMESARTAN MEDOXOMIL [Suspect]
     Indication: HYPERTENSION
     Dosage: DAILY DOSE:20MG-FREQ:FREQUENCY: QD
     Route: 048
  3. AMLODIN [Suspect]
     Indication: HYPERTENSION
     Dosage: DAILY DOSE:5MG-FREQ:FREQUENCY: QD
     Route: 048
  4. WARFARIN SODIUM [Suspect]
     Indication: HYPERTENSION
     Dosage: DAILY DOSE:3MG-FREQ:FREQUENCY: DAILY
     Route: 048

REACTIONS (1)
  - CARDIAC FAILURE [None]
